FAERS Safety Report 7266756-8 (Version None)
Quarter: 2011Q1

REPORT INFORMATION
  Report Type: 
  Country: None (occurrence: None)
  Receive Date: 20110201
  Receipt Date: 20110118
  Transmission Date: 20110831
  Serious: No
  Sender: FDA-Public Use
  Company Number: US-BIOGENIDEC-2011BI003123

PATIENT
  Sex: Female

DRUGS (4)
  1. COPAXONE [Concomitant]
  2. TYSABRI [Suspect]
     Route: 042
     Dates: start: 20050210, end: 20050210
  3. TYSABRI [Suspect]
     Indication: MULTIPLE SCLEROSIS
     Route: 042
     Dates: start: 20100719
  4. TYSABRI [Suspect]
     Route: 042
     Dates: start: 20060912, end: 20100301

REACTIONS (2)
  - ABASIA [None]
  - MULTIPLE SCLEROSIS RELAPSE [None]
